FAERS Safety Report 25620129 (Version 1)
Quarter: 2025Q3

REPORT INFORMATION
  Report Type: Spontaneous
  Country: CO (occurrence: CO)
  Receive Date: 20250730
  Receipt Date: 20250730
  Transmission Date: 20251020
  Serious: Yes (Hospitalization, Other)
  Sender: CHEPLAPHARM
  Company Number: CO-CHEPLA-2025009100

PATIENT
  Age: 11 Year
  Sex: Female

DRUGS (6)
  1. CLONAZEPAM [Suspect]
     Active Substance: CLONAZEPAM
     Indication: Epilepsy
     Dosage: DAILY DOSE: 6 DROP
     Dates: start: 20250411
  2. LEVETIRACETAM [Suspect]
     Active Substance: LEVETIRACETAM
     Dosage: 500 MG IN THE MORNING, 350 MG IN THE AFTERNOON, AND 500 MG AT NIGHT?DAILY DOSE: 1350 MILLIGRAM
     Dates: start: 20250411
  3. LEVETIRACETAM [Suspect]
     Active Substance: LEVETIRACETAM
  4. VIMPAT [Suspect]
     Active Substance: LACOSAMIDE
     Indication: Seizure
     Dates: end: 20250411
  5. CLOBAZAM [Concomitant]
     Active Substance: CLOBAZAM
  6. PHENOBARBITAL [Concomitant]
     Active Substance: PHENOBARBITAL

REACTIONS (5)
  - Somnolence [Not Recovered/Not Resolved]
  - Blindness [Not Recovered/Not Resolved]
  - Deafness [Not Recovered/Not Resolved]
  - Myoclonic dystonia [Not Recovered/Not Resolved]
  - Skin laceration [Not Recovered/Not Resolved]

NARRATIVE: CASE EVENT DATE: 20250411
